FAERS Safety Report 18019871 (Version 2)
Quarter: 2020Q3

REPORT INFORMATION
  Report Type: Spontaneous
  Country: US (occurrence: US)
  Receive Date: 20200714
  Receipt Date: 20200715
  Transmission Date: 20201103
  Serious: No
  Sender: FDA-Public Use
  Company Number: US-PFIZER INC-2020266730

PATIENT
  Age: 65 Year
  Sex: Female
  Weight: 54.43 kg

DRUGS (4)
  1. XANAX [Suspect]
     Active Substance: ALPRAZOLAM
     Dosage: 0.25 MG, ONCE A DAY AS NEEDED
     Route: 048
  2. XANAX [Suspect]
     Active Substance: ALPRAZOLAM
     Dosage: UNK (IN A 10?14?DAY PERIOD, SHE TOOK 3?4 HALF PILL DOSAGE)
  3. XANAX [Suspect]
     Active Substance: ALPRAZOLAM
     Dosage: UNK (ONCE OR TWICE A MONTH, HALF OF THE 0.25MG DOSAGE)
  4. XANAX [Suspect]
     Active Substance: ALPRAZOLAM
     Indication: ANXIETY
     Dosage: UNK

REACTIONS (8)
  - Abdominal pain [Not Recovered/Not Resolved]
  - Abdominal discomfort [Not Recovered/Not Resolved]
  - Expired product administered [Unknown]
  - Faeces soft [Not Recovered/Not Resolved]
  - Toothache [Unknown]
  - Abnormal faeces [Not Recovered/Not Resolved]
  - Stress [Unknown]
  - Intentional product use issue [Unknown]
